FAERS Safety Report 25461287 (Version 1)
Quarter: 2025Q2

REPORT INFORMATION
  Report Type: Spontaneous
  Country: FR (occurrence: FR)
  Receive Date: 20250620
  Receipt Date: 20250620
  Transmission Date: 20250717
  Serious: Yes (Other)
  Sender: AUROBINDO
  Company Number: FR-AFSSAPS-TS2025000575

PATIENT
  Age: 1 Day
  Sex: Male
  Weight: 4 kg

DRUGS (3)
  1. HYDROCORTISONE [Suspect]
     Active Substance: HYDROCORTISONE
     Indication: Pituitary tumour benign
     Dosage: 15 MILLIGRAM, ONCE A DAY
     Route: 064
     Dates: start: 202404, end: 20250114
  2. DOSTINEX [Suspect]
     Active Substance: CABERGOLINE
     Indication: Pituitary tumour benign
     Dosage: 0.5 MILLIGRAM, EVERY WEEK
     Route: 064
     Dates: start: 202404, end: 20250114
  3. LEVOTHYROXINE SODIUM [Suspect]
     Active Substance: LEVOTHYROXINE SODIUM
     Indication: Pituitary tumour benign
     Dosage: 125 MICROGRAM, ONCE A DAY
     Route: 064
     Dates: start: 202404, end: 20250114

REACTIONS (3)
  - Hyperkalaemia [Recovered/Resolved]
  - Somnolence [Recovered/Resolved]
  - Maternal exposure during pregnancy [Recovered/Resolved]

NARRATIVE: CASE EVENT DATE: 20240401
